FAERS Safety Report 14748221 (Version 2)
Quarter: 2018Q2

REPORT INFORMATION
  Report Type: Spontaneous
  Country: ES (occurrence: ES)
  Receive Date: 20180411
  Receipt Date: 20180416
  Transmission Date: 20180711
  Serious: Yes (Life-Threatening, Hospitalization, Other)
  Sender: FDA-Public Use
  Company Number: ES-VALIDUS PHARMACEUTICALS LLC-ES-2018VAL000634

PATIENT
  Age: 2 Year
  Sex: Male

DRUGS (1)
  1. CEFOTAXIME SODIUM [Suspect]
     Active Substance: CEFOTAXIME SODIUM
     Indication: TONSILLITIS
     Dosage: 685 MG, EVERY 8 HOURS
     Route: 065

REACTIONS (2)
  - Agranulocytosis [Recovered/Resolved]
  - Toxicity to various agents [Recovered/Resolved]
